FAERS Safety Report 8008462-8 (Version None)
Quarter: 2011Q4

REPORT INFORMATION
  Report Type: 
  Country: None (occurrence: None)
  Receive Date: 20111227
  Receipt Date: 20111221
  Transmission Date: 20120403
  Serious: Yes (Hospitalization)
  Sender: FDA-Public Use
  Company Number: US-BAYER-2011-046215

PATIENT
  Age: 23 Year
  Sex: Female
  Weight: 54.422 kg

DRUGS (3)
  1. NSAID'S [Concomitant]
     Dosage: UNK
     Dates: start: 20010101, end: 20110101
  2. YAZ [Suspect]
  3. YAZ [Suspect]
     Indication: CONTRACEPTION
     Dosage: UNK
     Route: 048
     Dates: start: 20070523, end: 20070613

REACTIONS (7)
  - CHEST PAIN [None]
  - DYSPNOEA [None]
  - INJURY [None]
  - PAIN [None]
  - EMOTIONAL DISTRESS [None]
  - PULMONARY EMBOLISM [None]
  - ANHEDONIA [None]
